FAERS Safety Report 8218069-5 (Version None)
Quarter: 2012Q1

REPORT INFORMATION
  Report Type: 
  Country: None (occurrence: None)
  Receive Date: 20120305
  Receipt Date: 20111121
  Transmission Date: 20120608
  Serious: No
  Sender: FDA-Public Use
  Company Number: 1000025671

PATIENT
  Age: 69 Year
  Sex: Female

DRUGS (2)
  1. LISINOPRIL [Concomitant]
  2. DALIRESP [Suspect]
     Indication: CHRONIC OBSTRUCTIVE PULMONARY DISEASE
     Dosage: 500 MCG (500 MCG, 1 IN1 D) ORAL
     Route: 048
     Dates: start: 20111101, end: 20111120

REACTIONS (5)
  - INSOMNIA [None]
  - HEADACHE [None]
  - NAUSEA [None]
  - DYSGEUSIA [None]
  - DIARRHOEA [None]
